FAERS Safety Report 11796822 (Version 2)
Quarter: 2015Q4

REPORT INFORMATION
  Report Type: Spontaneous
  Country: CH (occurrence: CH)
  Receive Date: 20151203
  Receipt Date: 20151223
  Transmission Date: 20160305
  Serious: Yes (Death)
  Sender: FDA-Public Use
  Company Number: CH-BAYER-2015-476107

PATIENT
  Age: 86 Year
  Sex: Male

DRUGS (8)
  1. FLUVASTATIN [Concomitant]
     Active Substance: FLUVASTATIN SODIUM
     Dosage: 80 MG, QD
  2. XARELTO [Concomitant]
     Active Substance: RIVAROXABAN
     Indication: PULMONARY EMBOLISM
     Dosage: 15 MG, BID
     Route: 048
     Dates: start: 20151017, end: 20151019
  3. CODEINE [Concomitant]
     Active Substance: CODEINE
     Dosage: 25 MG, UNK
  4. ENOXAPARIN [Concomitant]
     Active Substance: ENOXAPARIN
     Indication: PULMONARY EMBOLISM
  5. ADEMPAS [Suspect]
     Active Substance: RIOCIGUAT
     Indication: PULMONARY ARTERIAL HYPERTENSION
     Dosage: 2 MG, TID
     Route: 048
  6. ASPIRIN CARDIO [Concomitant]
     Active Substance: ASPIRIN
  7. TEMESTA [Concomitant]
     Active Substance: LORAZEPAM
     Dosage: 1 MG, QD
  8. XARELTO [Concomitant]
     Active Substance: RIVAROXABAN
     Indication: PULMONARY EMBOLISM
     Dosage: 20 UNK, UNK
     Dates: start: 20151020

REACTIONS (2)
  - Syncope [Fatal]
  - Right ventricular failure [Fatal]
